FAERS Safety Report 6955901-7 (Version None)
Quarter: 2010Q3

REPORT INFORMATION
  Report Type: 
  Country: None (occurrence: None)
  Receive Date: 20100830
  Receipt Date: 20100810
  Transmission Date: 20110219
  Serious: Yes (Other)
  Sender: FDA-Public Use
  Company Number: MX-ROCHE-723700

PATIENT
  Sex: Female
  Weight: 81 kg

DRUGS (3)
  1. PEGINTERFERON ALFA-2A [Suspect]
     Indication: HEPATITIS C
     Route: 058
     Dates: start: 20100410
  2. RIBAVIRIN [Suspect]
     Indication: HEPATITIS C
     Route: 048
     Dates: start: 20100410, end: 20100808
  3. RIBAVIRIN [Suspect]
     Route: 048
     Dates: start: 20100809

REACTIONS (6)
  - BONE PAIN [None]
  - CONSTIPATION [None]
  - FATIGUE [None]
  - LEUKOPENIA [None]
  - PHLEBITIS [None]
  - THROMBOCYTOPENIA [None]
